FAERS Safety Report 4395239-8 (Version None)
Quarter: 2004Q3

REPORT INFORMATION
  Report Type: 
  Country: None (occurrence: None)
  Receive Date: 20040712
  Receipt Date: 20040702
  Transmission Date: 20050211
  Serious: Yes (Hospitalization)
  Sender: FDA-Public Use
  Company Number: LB-MERCK-0407USA00181

PATIENT
  Sex: Female

DRUGS (7)
  1. [THERAPY UNSPECIFIED] [Concomitant]
     Route: 065
  2. PLAVIX [Concomitant]
     Route: 065
  3. LANOXIN [Concomitant]
     Route: 065
  4. INSULIN [Concomitant]
     Route: 065
  5. COZAAR [Suspect]
     Route: 048
  6. CORVASAL [Concomitant]
     Route: 065
  7. ALDACTONE [Concomitant]
     Route: 065

REACTIONS (1)
  - CARDIAC FAILURE CONGESTIVE [None]
